FAERS Safety Report 7706459-6 (Version None)
Quarter: 2011Q3

REPORT INFORMATION
  Report Type: 
  Country: None (occurrence: None)
  Receive Date: 20110824
  Receipt Date: 20110816
  Transmission Date: 20111222
  Serious: Yes (Hospitalization)
  Sender: FDA-Public Use
  Company Number: US-JNJFOC-20110503949

PATIENT
  Sex: Female
  Weight: 65.1 kg

DRUGS (2)
  1. REMICADE [Suspect]
     Indication: INFLAMMATORY BOWEL DISEASE
     Route: 042
     Dates: start: 20061213, end: 20070725
  2. HUMIRA [Concomitant]
     Indication: INFLAMMATORY BOWEL DISEASE

REACTIONS (4)
  - WEIGHT DECREASED [None]
  - ABDOMINAL PAIN [None]
  - DEHYDRATION [None]
  - VOMITING [None]
